FAERS Safety Report 8038017-0 (Version None)
Quarter: 2012Q1

REPORT INFORMATION
  Report Type: 
  Country: None (occurrence: None)
  Receive Date: 20120111
  Receipt Date: 20120102
  Transmission Date: 20120608
  Serious: Yes (Other)
  Sender: FDA-Public Use
  Company Number: FR-ASTRAZENECA-2012SE00299

PATIENT
  Age: 59 Year
  Sex: Female

DRUGS (14)
  1. CARBOCAINE [Suspect]
     Route: 065
     Dates: start: 20111109, end: 20111109
  2. BETADINE [Suspect]
     Route: 047
     Dates: start: 20111109, end: 20111109
  3. TROPICAMIDE [Suspect]
     Route: 047
  4. INDOMETHACIN [Suspect]
     Route: 047
  5. AZITHROMYCIN [Suspect]
     Route: 047
     Dates: start: 20111109, end: 20111109
  6. IRBESARTAN AND HYDROCHLOROTHIAZIDE [Concomitant]
     Route: 048
  7. METFORMIN HCL [Concomitant]
     Route: 048
  8. BENOXINATE HYDROCHLORIDE [Suspect]
     Route: 047
  9. LEVOFLOXACIN [Concomitant]
     Route: 048
  10. ATORVASTATIN CALCIUM [Concomitant]
     Route: 048
  11. AMIKACIN SULFATE [Suspect]
     Route: 047
     Dates: start: 20111109, end: 20111109
  12. INSULINE [Concomitant]
     Route: 058
  13. PHENYLEPHRINE HCL [Suspect]
     Route: 047
  14. METFORMIN HCL [Concomitant]
     Route: 048

REACTIONS (1)
  - CORNEAL STAINING [None]
